FAERS Safety Report 5798749-1 (Version None)
Quarter: 2008Q3

REPORT INFORMATION
  Report Type: 
  Country: None (occurrence: None)
  Receive Date: 20080702
  Receipt Date: 20080619
  Transmission Date: 20090109
  Serious: Yes (Other)
  Sender: FDA-Public Use
  Company Number: JP-AMGEN-US291126

PATIENT
  Age: 41 Year
  Sex: Female

DRUGS (3)
  1. ENBREL [Suspect]
     Indication: RHEUMATOID ARTHRITIS
     Route: 058
     Dates: start: 20000801
  2. PREDNISONE 50MG TAB [Concomitant]
     Route: 065
     Dates: start: 20000801, end: 20020401
  3. LEFLUNOMIDE [Concomitant]
     Dosage: UNKNOWN
     Route: 065
     Dates: start: 20000101, end: 20020401

REACTIONS (4)
  - RHEUMATOID NODULE [None]
  - SURGERY [None]
  - SYNOVITIS [None]
  - UPPER RESPIRATORY TRACT INFECTION [None]
